FAERS Safety Report 4841297-3 (Version None)
Quarter: 2005Q4

REPORT INFORMATION
  Report Type: 
  Country: None (occurrence: None)
  Receive Date: 20051130
  Receipt Date: 20051124
  Transmission Date: 20060501
  Serious: Yes (Death, Other)
  Sender: FDA-Public Use
  Company Number: PHBS2005ES17338

PATIENT
  Age: 57 Year
  Sex: Male

DRUGS (1)
  1. AREDIA [Suspect]
     Indication: MULTIPLE MYELOMA
     Dosage: 90 MG
     Route: 042
     Dates: start: 19980101, end: 20040901

REACTIONS (3)
  - MALIGNANT NEOPLASM PROGRESSION [None]
  - OSTEONECROSIS [None]
  - TOOTH EXTRACTION [None]
